FAERS Safety Report 12847665 (Version 1)
Quarter: 2016Q4

REPORT INFORMATION
  Report Type: Spontaneous
  Country: FR (occurrence: FR)
  Receive Date: 20161014
  Receipt Date: 20161014
  Transmission Date: 20170207
  Serious: Yes (Hospitalization)
  Sender: FDA-Public Use
  Company Number: FR-AMGEN-FRASP2016140700

PATIENT
  Age: 38 Year
  Sex: Female

DRUGS (13)
  1. INFLECTRA [Suspect]
     Active Substance: INFLIXIMAB-DYYB
     Indication: SAPHO SYNDROME
     Dosage: 5 MG/KG, SINGLE
     Route: 042
     Dates: start: 20160321
  2. SOLUPRED                           /00016201/ [Concomitant]
     Active Substance: PREDNISOLONE
  3. HUMIRA [Suspect]
     Active Substance: ADALIMUMAB
     Indication: SAPHO SYNDROME
     Dosage: 40 MG, EVERY 2 WEEKS
     Route: 058
     Dates: start: 201601, end: 201603
  4. LAROXYL [Concomitant]
     Active Substance: AMITRIPTYLINE
  5. GLYCEROL\PARAFFIN [Concomitant]
     Active Substance: GLYCERIN\PARAFFIN
  6. ENBREL [Suspect]
     Active Substance: ETANERCEPT
     Indication: PRODUCT USED FOR UNKNOWN INDICATION
     Dosage: 50 MG, WEEKLY
     Route: 058
     Dates: start: 201509, end: 201512
  7. DOLIPRANE [Concomitant]
     Active Substance: ACETAMINOPHEN
  8. PROFENID [Concomitant]
     Active Substance: KETOPROFEN
  9. FUNGIZONE [Concomitant]
     Active Substance: AMPHOTERICIN B
  10. OMEPRAZOLE. [Concomitant]
     Active Substance: OMEPRAZOLE
  11. DERMOVAL [Concomitant]
     Active Substance: CLOBETASOL
  12. DIPROSONE [Concomitant]
     Active Substance: BETAMETHASONE DIPROPIONATE
  13. COLCHICINE. [Concomitant]
     Active Substance: COLCHICINE

REACTIONS (2)
  - Product use issue [Unknown]
  - Pustular psoriasis [Recovering/Resolving]

NARRATIVE: CASE EVENT DATE: 201509
